FAERS Safety Report 11254167 (Version 1)
Quarter: 2015Q3

REPORT INFORMATION
  Report Type: Spontaneous
  Country: JP (occurrence: JP)
  Receive Date: 20150709
  Receipt Date: 20150709
  Transmission Date: 20151125
  Serious: Yes (Death)
  Sender: FDA-Public Use
  Company Number: JP-009507513-1507JPN001704

PATIENT
  Age: 61 Year
  Sex: Female
  Weight: 44 kg

DRUGS (2)
  1. CANCIDAS [Suspect]
     Active Substance: CASPOFUNGIN ACETATE
     Indication: BRONCHOPULMONARY ASPERGILLOSIS
     Dosage: 50 MG, QD
     Route: 041
     Dates: start: 20140110, end: 20150530
  2. AMBISOME [Concomitant]
     Active Substance: AMPHOTERICIN B
     Indication: BRONCHOPULMONARY ASPERGILLOSIS
     Dosage: 125 MG, QD
     Route: 051
     Dates: start: 20131210, end: 20140228

REACTIONS (1)
  - Organising pneumonia [Fatal]

NARRATIVE: CASE EVENT DATE: 20140311
